FAERS Safety Report 11060516 (Version 1)
Quarter: 2015Q2

REPORT INFORMATION
  Report Type: Spontaneous
  Country: US (occurrence: US)
  Receive Date: 20150423
  Receipt Date: 20150423
  Transmission Date: 20150821
  Serious: Yes (Hospitalization, Other)
  Sender: FDA-Public Use
  Company Number: US-SA-2015SA051227

PATIENT

DRUGS (1)
  1. ALLEGRA [Suspect]
     Active Substance: FEXOFENADINE HYDROCHLORIDE
     Route: 048

REACTIONS (13)
  - Depression [Unknown]
  - Anxiety [Unknown]
  - Chills [Unknown]
  - Decreased appetite [Unknown]
  - Feeling of body temperature change [Unknown]
  - Tachyphrenia [Unknown]
  - Hyperhidrosis [Unknown]
  - Abnormal dreams [Unknown]
  - Mood swings [Unknown]
  - Lethargy [Unknown]
  - Suicidal ideation [Unknown]
  - Asthma [Unknown]
  - Insomnia [Unknown]
